FAERS Safety Report 8166949-1 (Version None)
Quarter: 2012Q1

REPORT INFORMATION
  Report Type: 
  Country: None (occurrence: None)
  Receive Date: 20120227
  Receipt Date: 20120220
  Transmission Date: 20120608
  Serious: Yes (Death)
  Sender: FDA-Public Use
  Company Number: US-ASTELLAS-2012US001969

PATIENT
  Sex: Male
  Weight: 102 kg

DRUGS (1)
  1. PROGRAF [Suspect]
     Indication: LIVER TRANSPLANT
     Dosage: 2 MG IN THE MORNING, 1 MG IN THE EVENING
     Route: 048
     Dates: start: 20060613, end: 20111120

REACTIONS (1)
  - DEATH [None]
